FAERS Safety Report 6182789-7 (Version None)
Quarter: 2009Q2

REPORT INFORMATION
  Report Type: 
  Country: None (occurrence: None)
  Receive Date: 20090507
  Receipt Date: 20090427
  Transmission Date: 20091009
  Serious: Yes (Life-Threatening, Hospitalization)
  Sender: FDA-Public Use
  Company Number: US-B.I. PHARMACEUTICALS,INC./RIDGEFIELD-2009-DE-03415GD

PATIENT
  Age: 57 Year
  Sex: Male

DRUGS (7)
  1. NEVIRAPINE [Suspect]
     Indication: HIV INFECTION
     Dosage: 200MG
  2. ABACAVIR [Suspect]
     Indication: HIV INFECTION
     Dosage: 600MG
  3. TENOFOVIR [Suspect]
     Indication: HIV INFECTION
     Dosage: 300MG
  4. VORICONAZOLE [Suspect]
     Indication: ASPERGILLOSIS
     Dosage: 400MG
  5. VORICONAZOLE [Suspect]
     Indication: EYE INFECTION FUNGAL
  6. METHADONE [Suspect]
     Indication: DRUG DEPENDENCE
     Dosage: 125MG
  7. METHADONE [Suspect]
     Indication: DETOXIFICATION

REACTIONS (12)
  - CARDIOMEGALY [None]
  - CONVULSION [None]
  - DRUG INTERACTION [None]
  - DYSPNOEA [None]
  - LONG QT SYNDROME [None]
  - MENTAL DISORDER [None]
  - MUSCLE TWITCHING [None]
  - PALPITATIONS [None]
  - PULMONARY OEDEMA [None]
  - TORSADE DE POINTES [None]
  - URINARY INCONTINENCE [None]
  - VENTRICULAR TACHYCARDIA [None]
